FAERS Safety Report 7457298-5 (Version None)
Quarter: 2011Q1

REPORT INFORMATION
  Report Type: 
  Country: None (occurrence: None)
  Receive Date: 20110302
  Receipt Date: 20110302
  Transmission Date: 20110831
  Serious: Yes (Other)
  Sender: FDA-Public Use
  Company Number: None

PATIENT
  Age: 48 Year
  Sex: Female
  Weight: 59.8748 kg

DRUGS (1)
  1. GRIS-PEG [Suspect]
     Indication: FUNGAL INFECTION
     Dosage: 250 MG TWICE DAILY
     Dates: start: 20110329, end: 20110402

REACTIONS (6)
  - RASH PRURITIC [None]
  - LOSS OF CONSCIOUSNESS [None]
  - ARTHRALGIA [None]
  - DIZZINESS [None]
  - CHILLS [None]
  - HEADACHE [None]
